FAERS Safety Report 8064461-1 (Version None)
Quarter: 2012Q1

REPORT INFORMATION
  Report Type: 
  Country: None (occurrence: None)
  Receive Date: 20120123
  Receipt Date: 20120112
  Transmission Date: 20120608
  Serious: Yes (Other)
  Sender: FDA-Public Use
  Company Number: PHFR2012GB000640

PATIENT
  Sex: Male

DRUGS (2)
  1. DEPIXOL [Concomitant]
     Dates: start: 20111229
  2. CLOZARIL [Suspect]
     Indication: SCHIZOPHRENIA
     Dosage: 12.5 MG, UNK
     Route: 048
     Dates: start: 20120111, end: 20120112

REACTIONS (7)
  - SYNCOPE [None]
  - URINARY INCONTINENCE [None]
  - LOSS OF CONSCIOUSNESS [None]
  - FALL [None]
  - BLOOD PRESSURE DECREASED [None]
  - DISORIENTATION [None]
  - CONTUSION [None]
